FAERS Safety Report 15551505 (Version 2)
Quarter: 2018Q4

REPORT INFORMATION
  Report Type: Spontaneous
  Country: BR (occurrence: BR)
  Receive Date: 20181025
  Receipt Date: 20181115
  Transmission Date: 20190205
  Serious: Yes (Other)
  Sender: FDA-Public Use
  Company Number: BR-BIOMARINAP-BR-2018-120038

PATIENT
  Age: 11 Year
  Sex: Female
  Weight: 17.3 kg

DRUGS (1)
  1. NAGLAZYME [Suspect]
     Active Substance: GALSULFASE
     Indication: MUCOPOLYSACCHARIDOSIS VI
     Dosage: UNK UNK, QW
     Route: 042
     Dates: start: 20140318

REACTIONS (15)
  - Motor dysfunction [Not Recovered/Not Resolved]
  - Paralysis [Unknown]
  - Gait disturbance [Not Recovered/Not Resolved]
  - Bedridden [Unknown]
  - Loss of personal independence in daily activities [Not Recovered/Not Resolved]
  - Muscle atrophy [Not Recovered/Not Resolved]
  - Depressed mood [Not Recovered/Not Resolved]
  - Tremor [Not Recovered/Not Resolved]
  - Fall [Not Recovered/Not Resolved]
  - Depressive symptom [Unknown]
  - Gait inability [Not Recovered/Not Resolved]
  - Diplegia [Unknown]
  - Dysstasia [Not Recovered/Not Resolved]
  - Muscular weakness [Not Recovered/Not Resolved]
  - Hypokinesia [Not Recovered/Not Resolved]

NARRATIVE: CASE EVENT DATE: 20181016
